FAERS Safety Report 6088014-X (Version None)
Quarter: 2009Q1

REPORT INFORMATION
  Report Type: 
  Country: None (occurrence: None)
  Receive Date: 20090219
  Receipt Date: 20090210
  Transmission Date: 20090719
  Serious: Yes (Other)
  Sender: FDA-Public Use
  Company Number: 1-17531881

PATIENT
  Age: 28 Year
  Sex: Female
  Weight: 112.9457 kg

DRUGS (4)
  1. PHENTERMINE HCL [Suspect]
     Indication: WEIGHT CONTROL
     Dosage: 37.5 MG DAILY, ORAL
     Route: 048
     Dates: start: 20090206, end: 20090209
  2. TUMS [Concomitant]
  3. MULTI-VITAMIN [Concomitant]
  4. VITAMIN B-12 [Concomitant]

REACTIONS (16)
  - ABDOMINAL PAIN UPPER [None]
  - ADVERSE DRUG REACTION [None]
  - DROOLING [None]
  - FEELING OF BODY TEMPERATURE CHANGE [None]
  - HEADACHE [None]
  - HYPOAESTHESIA [None]
  - LETHARGY [None]
  - LIP DISORDER [None]
  - LOSS OF CONSCIOUSNESS [None]
  - MUSCLE TWITCHING [None]
  - MUSCULOSKELETAL PAIN [None]
  - NAIL DISCOLOURATION [None]
  - PALPITATIONS [None]
  - PARAESTHESIA [None]
  - RETCHING [None]
  - VOMITING [None]
